FAERS Safety Report 5939451-2 (Version None)
Quarter: 2008Q4

REPORT INFORMATION
  Report Type: 
  Country: None (occurrence: None)
  Receive Date: 20081029
  Receipt Date: 20081013
  Transmission Date: 20090506
  Serious: Yes (Hospitalization)
  Sender: FDA-Public Use
  Company Number: 8036460

PATIENT
  Age: 81 Year
  Sex: Female
  Weight: 75 kg

DRUGS (4)
  1. KEPPRA [Suspect]
     Indication: CONVULSION
     Dosage: 1000 MG /D PO
     Route: 048
     Dates: start: 20080501, end: 20080718
  2. KEPPRA [Suspect]
     Indication: POST PROCEDURAL COMPLICATION
     Dosage: 1000 MG /D PO
     Route: 048
     Dates: start: 20080501, end: 20080718
  3. NOVAMINSULFON [Concomitant]
  4. IBUPROFEN TABLETS [Concomitant]

REACTIONS (1)
  - TOXIC EPIDERMAL NECROLYSIS [None]
